FAERS Safety Report 4570105-3 (Version None)
Quarter: 2005Q1

REPORT INFORMATION
  Report Type: 
  Country: None (occurrence: None)
  Receive Date: 20050131
  Receipt Date: 20050120
  Transmission Date: 20050727
  Serious: Yes (Hospitalization, Disabling, Other)
  Sender: FDA-Public Use
  Company Number: 2004-11-1199

PATIENT
  Age: 34 Year
  Sex: Male
  Weight: 98.4306 kg

DRUGS (5)
  1. PEG-INTRON [Suspect]
     Indication: HEPATITIS C
     Dosage: 150 MCG QS SUBCUTANEOUS
     Route: 058
     Dates: start: 20030901, end: 20040904
  2. REBETOL [Suspect]
     Indication: HEPATITIS C
     Dosage: 1200 MG QD ORAL
     Route: 048
     Dates: start: 20030901, end: 20040904
  3. EFFEXOR [Concomitant]
  4. VITAMIN E [Concomitant]
  5. FOLIC ACID [Concomitant]

REACTIONS (15)
  - ANION GAP INCREASED [None]
  - APPENDICECTOMY [None]
  - CONSTIPATION [None]
  - DEHYDRATION [None]
  - DIABETES MELLITUS [None]
  - DIABETIC KETOACIDOSIS [None]
  - DYSPEPSIA [None]
  - FATIGUE [None]
  - FEELING ABNORMAL [None]
  - GILBERT'S SYNDROME [None]
  - HEADACHE [None]
  - HYPONATRAEMIA [None]
  - INSOMNIA [None]
  - WEIGHT DECREASED [None]
  - WHITE BLOOD CELL COUNT DECREASED [None]
